FAERS Safety Report 17956588 (Version 1)
Quarter: 2020Q2

REPORT INFORMATION
  Report Type: Report from Study
  Country: US (occurrence: US)
  Receive Date: 20200629
  Receipt Date: 20200629
  Transmission Date: 20200714
  Serious: Yes (Death, Life-Threatening)
  Sender: FDA-Public Use
  Company Number: US-PUMA BIOTECHNOLOGY, LTD.-2019US006772

PATIENT

DRUGS (3)
  1. NERLYNX [Suspect]
     Active Substance: NERATINIB
     Indication: SMALL INTESTINE ADENOCARCINOMA
  2. NERLYNX [Suspect]
     Active Substance: NERATINIB
     Indication: HER2 PROTEIN OVEREXPRESSION
     Dosage: 6 TABLETS, DAILY
     Route: 048
     Dates: start: 20190622, end: 201908
  3. IMODIUM [Suspect]
     Active Substance: LOPERAMIDE HYDROCHLORIDE
     Indication: PROPHYLAXIS AGAINST DIARRHOEA

REACTIONS (6)
  - Off label use [Unknown]
  - Death [Fatal]
  - Small intestine adenocarcinoma [Unknown]
  - Cerebrovascular accident [Recovering/Resolving]
  - Constipation [Recovering/Resolving]
  - Flatulence [Recovering/Resolving]

NARRATIVE: CASE EVENT DATE: 2019
